FAERS Safety Report 25518032 (Version 2)
Quarter: 2025Q3

REPORT INFORMATION
  Report Type: Spontaneous
  Country: EU (occurrence: EU)
  Receive Date: 20250704
  Receipt Date: 20250810
  Transmission Date: 20251020
  Serious: Yes (Death, Other)
  Sender: ALEXION PHARMACEUTICALS
  Company Number: EU-AstraZeneca-CH-00881939A

PATIENT
  Sex: Male
  Weight: 80 kg

DRUGS (3)
  1. IMFINZI [Suspect]
     Active Substance: DURVALUMAB
     Indication: Non-small cell lung cancer
     Dates: start: 20250414, end: 20250526
  2. TREMELIMUMAB [Suspect]
     Active Substance: TREMELIMUMAB
     Dates: start: 20250414, end: 20250526
  3. PEMETREXED [Concomitant]
     Active Substance: PEMETREXED
     Route: 065

REACTIONS (6)
  - Respiratory arrest [Fatal]
  - Confusional state [Unknown]
  - Imperception [Unknown]
  - Visual impairment [Unknown]
  - Metastases to central nervous system [Unknown]
  - General physical health deterioration [Unknown]

NARRATIVE: CASE EVENT DATE: 20250526
